FAERS Safety Report 16566345 (Version 1)
Quarter: 2019Q3

REPORT INFORMATION
  Report Type: Report from Study
  Country: BR (occurrence: BR)
  Receive Date: 20190712
  Receipt Date: 20190712
  Transmission Date: 20191004
  Serious: Yes (Hospitalization)
  Sender: FDA-Public Use
  Company Number: BR-AMREGENT-20191445

PATIENT
  Age: 32 Year
  Sex: Male

DRUGS (5)
  1. CITONEURIN [Concomitant]
     Active Substance: CYANOCOBALAMIN\PYRIDOXINE HYDROCHLORIDE\THIAMINE
     Dosage: 3 IN 1 WEEK
     Route: 065
  2. VENOFER [Suspect]
     Active Substance: IRON SUCROSE
     Dosage: 200 MG, 1 IN 1 WEEK
     Route: 042
  3. ENTYVIO [Suspect]
     Active Substance: VEDOLIZUMAB
     Dosage: 1 DF, ON WEEKS 0, 2, 6 AND 8
     Route: 041
     Dates: start: 20170906
  4. AMIODARONE [Concomitant]
     Active Substance: AMIODARONE
     Dosage: 400 MG (200 MG, 2 IN 1 D)
     Route: 065
  5. ATENOLOL. [Concomitant]
     Active Substance: ATENOLOL
     Dosage: 100 MG (50 MG, 2 IN 1 D)
     Route: 065

REACTIONS (2)
  - Crohn^s disease [Recovered/Resolved]
  - Swelling face [Recovered/Resolved]

NARRATIVE: CASE EVENT DATE: 201709
